FAERS Safety Report 6339440-2 (Version None)
Quarter: 2009Q3

REPORT INFORMATION
  Report Type: 
  Country: None (occurrence: None)
  Receive Date: 20090903
  Receipt Date: 20090828
  Transmission Date: 20100115
  Serious: Yes (Hospitalization, Disabling)
  Sender: FDA-Public Use
  Company Number: US-ELI_LILLY_AND_COMPANY-US200906003306

PATIENT
  Sex: Male

DRUGS (4)
  1. BYETTA [Suspect]
     Indication: TYPE 2 DIABETES MELLITUS
     Dates: start: 20070101, end: 20080107
  2. AMARYL [Concomitant]
     Indication: TYPE 2 DIABETES MELLITUS
     Dates: end: 20080101
  3. LANTUS [Concomitant]
     Dates: start: 20080101
  4. HUMALOG                                 /GFR/ [Concomitant]
     Dates: start: 20080101

REACTIONS (4)
  - CEREBROVASCULAR ACCIDENT [None]
  - HYPERSENSITIVITY [None]
  - OFF LABEL USE [None]
  - PANCREATITIS [None]
